FAERS Safety Report 17604652 (Version 2)
Quarter: 2020Q2

REPORT INFORMATION
  Report Type: Spontaneous
  Country: US (occurrence: US)
  Receive Date: 20200331
  Receipt Date: 20200615
  Transmission Date: 20200713
  Serious: No
  Sender: FDA-Public Use
  Company Number: US-PFIZER INC-2020131655

PATIENT
  Age: 72 Year
  Sex: Female

DRUGS (1)
  1. XELJANZ XR [Suspect]
     Active Substance: TOFACITINIB CITRATE
     Indication: RHEUMATOID ARTHRITIS
     Dosage: 11 MG, DAILY
     Route: 048
     Dates: start: 20200206

REACTIONS (12)
  - Vomiting [Unknown]
  - Increased appetite [Unknown]
  - Diarrhoea [Unknown]
  - Weight increased [Unknown]
  - Lung disorder [Unknown]
  - Arthralgia [Unknown]
  - Peripheral swelling [Unknown]
  - Cardiac discomfort [Unknown]
  - Abdominal distension [Unknown]
  - Gastric disorder [Unknown]
  - Dyspepsia [Unknown]
  - Neck pain [Unknown]

NARRATIVE: CASE EVENT DATE: 2020
